FAERS Safety Report 14330169 (Version 2)
Quarter: 2018Q1

REPORT INFORMATION
  Report Type: Report from Study
  Country: FR (occurrence: FR)
  Receive Date: 20171227
  Receipt Date: 20180104
  Transmission Date: 20180509
  Serious: Yes (Other)
  Sender: FDA-Public Use
  Company Number: FR-PFIZER INC-2017544010

PATIENT
  Age: 2 Year
  Sex: Female

DRUGS (22)
  1. PREDNISOLONE. [Suspect]
     Active Substance: PREDNISOLONE
     Indication: ACUTE LYMPHOCYTIC LEUKAEMIA
     Dosage: UNK, TOTAL DOSE D8-D28 722MG
     Route: 065
     Dates: start: 20170926, end: 20171016
  2. ONCASPAR [Suspect]
     Active Substance: PEGASPARGASE
     Indication: ACUTE LYMPHOCYTIC LEUKAEMIA
     Dosage: 1425 IU, UNK
     Route: 042
     Dates: start: 20170930
  3. DAUNORUBICIN [Suspect]
     Active Substance: DAUNORUBICIN
     Dosage: 17 MG, UNK
     Route: 065
     Dates: start: 20171003
  4. VINCRISTINE SULFATE. [Suspect]
     Active Substance: VINCRISTINE SULFATE
     Indication: ACUTE LYMPHOCYTIC LEUKAEMIA
     Dosage: 0.86 MG, UNK
     Route: 065
     Dates: start: 20170926
  5. HYDROCORTISONE HEMISUCCINATE [Suspect]
     Active Substance: HYDROCORTISONE HEMISUCCINATE
     Dosage: 13 MG, UNK
     Route: 037
     Dates: start: 20171001
  6. RASBURICASE [Concomitant]
     Active Substance: RASBURICASE
     Indication: PROPHYLAXIS
     Dosage: UNK
  7. ERGOCALCIFEROL. [Concomitant]
     Active Substance: ERGOCALCIFEROL
     Indication: PROPHYLAXIS
     Dosage: UNK
  8. PIPERACILLIN AND TAZOBACTAM [Concomitant]
     Active Substance: PIPERACILLIN SODIUM\TAZOBACTAM SODIUM
     Indication: NEUTROPENIA
     Dosage: UNK
  9. PIPERACILLIN AND TAZOBACTAM [Concomitant]
     Active Substance: PIPERACILLIN SODIUM\TAZOBACTAM SODIUM
     Indication: PROPHYLAXIS
  10. METHOTREXATE SODIUM. [Suspect]
     Active Substance: METHOTREXATE SODIUM
     Dosage: 10 MG, UNK
     Route: 037
     Dates: start: 20171001
  11. DAUNORUBICIN [Suspect]
     Active Substance: DAUNORUBICIN
     Dosage: 17 MG, UNK
     Route: 065
     Dates: start: 20171017
  12. CALCIUM [Concomitant]
     Active Substance: CALCIUM
     Indication: PROPHYLAXIS
     Dosage: UNK
  13. CYTARABINE. [Suspect]
     Active Substance: CYTARABINE
     Indication: ACUTE LYMPHOCYTIC LEUKAEMIA
     Dosage: 25 MG, UNK
     Route: 037
     Dates: start: 20170211
  14. DAUNORUBICIN [Suspect]
     Active Substance: DAUNORUBICIN
     Indication: ACUTE LYMPHOCYTIC LEUKAEMIA
     Dosage: 17 MG, UNK
     Route: 065
     Dates: start: 20170926
  15. CYTARABINE. [Suspect]
     Active Substance: CYTARABINE
     Dosage: 25 MG, UNK
     Route: 037
     Dates: start: 20171001
  16. METHOTREXATE SODIUM. [Suspect]
     Active Substance: METHOTREXATE SODIUM
     Indication: ACUTE LYMPHOCYTIC LEUKAEMIA
     Dosage: 10 MG, UNK
     Route: 037
     Dates: start: 20170211
  17. DAUNORUBICIN [Suspect]
     Active Substance: DAUNORUBICIN
     Dosage: 17 MG, UNK
     Route: 065
     Dates: start: 20171010
  18. ESOMEPRAZOLE [Concomitant]
     Active Substance: ESOMEPRAZOLE
     Indication: PROPHYLAXIS AGAINST GASTROINTESTINAL ULCER
     Dosage: UNK
  19. VINCRISTINE SULFATE. [Suspect]
     Active Substance: VINCRISTINE SULFATE
     Dosage: 0.86 MG, UNK
     Route: 065
     Dates: start: 20171003
  20. VINCRISTINE SULFATE. [Suspect]
     Active Substance: VINCRISTINE SULFATE
     Dosage: 0.86 MG, UNK
     Route: 065
     Dates: start: 20171017
  21. HYDROCORTISONE HEMISUCCINATE [Suspect]
     Active Substance: HYDROCORTISONE HEMISUCCINATE
     Indication: ACUTE LYMPHOCYTIC LEUKAEMIA
     Dosage: 13 MG, UNK
     Route: 037
     Dates: start: 20170211
  22. RASBURICASE [Concomitant]
     Active Substance: RASBURICASE
     Indication: CELL DEATH

REACTIONS (1)
  - Hypofibrinogenaemia [Not Recovered/Not Resolved]

NARRATIVE: CASE EVENT DATE: 20171016
